FAERS Safety Report 7839861-2 (Version None)
Quarter: 2011Q4

REPORT INFORMATION
  Report Type: 
  Country: None (occurrence: None)
  Receive Date: 20111025
  Receipt Date: 20111017
  Transmission Date: 20120403
  Serious: Yes (Hospitalization)
  Sender: FDA-Public Use
  Company Number: US-BIOGENIDEC-2011BI035031

PATIENT
  Age: 53 Year
  Sex: Female

DRUGS (4)
  1. ZANAFLEX [Concomitant]
     Indication: MUSCLE SPASTICITY
  2. LEXAPRO [Concomitant]
     Indication: ANXIETY
  3. BACLOFEN [Concomitant]
     Indication: MUSCLE SPASTICITY
  4. TYSABRI [Suspect]
     Indication: MULTIPLE SCLEROSIS
     Route: 042
     Dates: start: 20070911, end: 20111018

REACTIONS (4)
  - ANXIETY [None]
  - URINARY RETENTION [None]
  - MULTIPLE SCLEROSIS RELAPSE [None]
  - CYSTITIS [None]
